FAERS Safety Report 9329698 (Version 1)
Quarter: 2013Q2

REPORT INFORMATION
  Report Type: Spontaneous
  Country: US (occurrence: US)
  Receive Date: 20130604
  Receipt Date: 20130604
  Transmission Date: 20140414
  Serious: Yes (Other)
  Sender: FDA-Public Use
  Company Number: US-SANOFI-AVENTIS-2012SA091057

PATIENT
  Sex: Female
  Weight: 56.7 kg

DRUGS (9)
  1. LANTUS SOLOSTAR [Suspect]
     Indication: TYPE 2 DIABETES MELLITUS
     Dosage: DOSE:20 UNIT(S)
     Route: 058
  2. LANTUS SOLOSTAR [Suspect]
     Indication: TYPE 2 DIABETES MELLITUS
     Dosage: DOSE:20 UNIT(S)
     Route: 058
  3. SOLOSTAR [Suspect]
     Indication: TYPE 2 DIABETES MELLITUS
  4. SOLOSTAR [Suspect]
     Indication: TYPE 2 DIABETES MELLITUS
  5. LISINOPRIL [Concomitant]
     Indication: HYPERTENSION
     Dosage: 1/2 TWICE A DAY STARTED ABOUT 10 YEARS AGO.
  6. CLONIDINE [Concomitant]
     Indication: DIABETES MELLITUS
     Dosage: 0.2 ONCE A DAY STARTED ABOUT 10 YEARS AGO.
  7. SIMVASTATIN [Concomitant]
     Indication: BLOOD CHOLESTEROL ABNORMAL
     Dosage: STARTED ABOUT 10 YEARS AGO.
  8. WARFARIN [Concomitant]
     Dosage: STARTED ABOUT 10 YEARS AGO.
  9. NORVAS [Concomitant]
     Dosage: STARTED ABOUT 10 YEAS AGO.

REACTIONS (1)
  - Cataract [Not Recovered/Not Resolved]
